FAERS Safety Report 9955326 (Version 2)
Quarter: 2014Q1

REPORT INFORMATION
  Report Type: Spontaneous
  Country: US (occurrence: US)
  Receive Date: 20140304
  Receipt Date: 20140304
  Transmission Date: 20141002
  Serious: No
  Sender: FDA-Public Use
  Company Number: US-ABBVIE-13P-163-1030127-00

PATIENT
  Sex: 0

DRUGS (1)
  1. HUMIRA [Suspect]
     Indication: PRODUCT USED FOR UNKNOWN INDICATION

REACTIONS (13)
  - Arthralgia [Unknown]
  - Arthralgia [Unknown]
  - Lupus-like syndrome [Unknown]
  - Adverse drug reaction [Unknown]
  - Psoriatic arthropathy [Unknown]
  - Psoriasis [Unknown]
  - Joint swelling [Unknown]
  - Oedema peripheral [Unknown]
  - Gait disturbance [Unknown]
  - Pain in extremity [Unknown]
  - Dry skin [Unknown]
  - Butterfly rash [Unknown]
  - Photosensitivity reaction [Unknown]
